FAERS Safety Report 4855074-0 (Version None)
Quarter: 2005Q4

REPORT INFORMATION
  Report Type: 
  Country: None (occurrence: None)
  Receive Date: 20051214
  Receipt Date: 20051208
  Transmission Date: 20060501
  Serious: Yes (Other)
  Sender: FDA-Public Use
  Company Number: 2005165902

PATIENT
  Age: 56 Year
  Sex: Female

DRUGS (8)
  1. BEXTRA [Suspect]
     Indication: OSTEOARTHRITIS
     Dosage: 10 MG (10 MG, 1 IN 1 D), ORAL
     Route: 048
     Dates: start: 20041101
  2. ACCUPRIL [Concomitant]
  3. DIOVAN ^CIBA-GEIGY^ (VALSARTAN) [Concomitant]
  4. METFORMIN HCL [Concomitant]
  5. GLIPIZIDE [Concomitant]
  6. AVANDIA [Concomitant]
  7. INSULIN [Concomitant]
  8. ACIPHEX [Concomitant]

REACTIONS (3)
  - DRUG INEFFECTIVE [None]
  - GAIT DISTURBANCE [None]
  - KNEE ARTHROPLASTY [None]
